FAERS Safety Report 25142831 (Version 1)
Quarter: 2025Q1

REPORT INFORMATION
  Report Type: Spontaneous
  Country: JP (occurrence: JP)
  Receive Date: 20250331
  Receipt Date: 20250331
  Transmission Date: 20250408
  Serious: Yes (Other)
  Sender: AMGEN
  Company Number: JP-AMGEN-JPNSP2025043268

PATIENT
  Sex: Male

DRUGS (6)
  1. BLINCYTO [Suspect]
     Active Substance: BLINATUMOMAB
     Indication: B precursor type acute leukaemia
     Route: 040
     Dates: start: 20241127
  2. BLINCYTO [Suspect]
     Active Substance: BLINATUMOMAB
     Dosage: 28 MICROGRAM, QD, DRIP INFUSION (THE 2ND AND SUBSEQUENT CYCLES: 28 MCG/DAILY)
     Route: 040
  3. GEFAPIXANT CITRATE [Concomitant]
     Active Substance: GEFAPIXANT CITRATE
  4. VITAMIN B12 [Concomitant]
     Active Substance: CYANOCOBALAMIN
  5. TRANSAMIN [Concomitant]
     Active Substance: TRANEXAMIC ACID
  6. CALONAL [Concomitant]
     Active Substance: ACETAMINOPHEN

REACTIONS (4)
  - Drug reaction with eosinophilia and systemic symptoms [Recovered/Resolved]
  - Cough [Recovered/Resolved]
  - Stomatitis [Recovering/Resolving]
  - Taste disorder [Recovering/Resolving]
